FAERS Safety Report 13994026 (Version 2)
Quarter: 2018Q2

REPORT INFORMATION
  Report Type: Spontaneous
  Country: CH (occurrence: CH)
  Receive Date: 20170920
  Receipt Date: 20180507
  Transmission Date: 20180711
  Serious: Yes (Death, Hospitalization, Other)
  Sender: FDA-Public Use
  Company Number: CH-PFIZER INC-2017398266

PATIENT
  Age: 41 Year
  Sex: Female

DRUGS (27)
  1. ZYVOXID [Suspect]
     Active Substance: LINEZOLID
     Indication: MYCOBACTERIUM AVIUM COMPLEX INFECTION
     Dosage: 600 MG, 1X PER 12 HOURS(30-MINUTES-INTRAVENOUS)
     Route: 041
     Dates: start: 20170824
  2. ORFIRIL [Interacting]
     Active Substance: VALPROATE SODIUM
     Dosage: 500 MG, 2X/DAY
     Route: 048
     Dates: start: 201706, end: 201708
  3. RIVOTRIL [Interacting]
     Active Substance: CLONAZEPAM
     Dosage: 1 MG, SINGLE
     Route: 048
     Dates: start: 20170826, end: 20170826
  4. AMIKACIN. [Concomitant]
     Active Substance: AMIKACIN
     Indication: ATYPICAL MYCOBACTERIUM TEST POSITIVE
     Dosage: UNK
     Dates: start: 20170729, end: 20170821
  5. ORFIRIL [Interacting]
     Active Substance: VALPROATE SODIUM
     Dosage: 1000 MG, 2X/DAY
     Dates: start: 20170828
  6. CLARITHROMYCIN. [Interacting]
     Active Substance: CLARITHROMYCIN
     Indication: MYCOBACTERIUM AVIUM COMPLEX INFECTION
     Dosage: 500 MG, 1X PER 12 HOURS
     Route: 048
     Dates: start: 20170821
  7. HALDOL [Suspect]
     Active Substance: HALOPERIDOL
     Dosage: 0.5 MG, 2X/D (MAX.) IN RESERVE
     Route: 048
  8. TRIUMEQ [Concomitant]
     Active Substance: ABACAVIR SULFATE\DOLUTEGRAVIR SODIUM\LAMIVUDINE
     Indication: HIV CARRIER
     Dosage: UNK
     Dates: start: 201610, end: 201707
  9. MOVICOL [Concomitant]
     Active Substance: POLYETHYLENE GLYCOL 3350\POTASSIUM CHLORIDE\SODIUM BICARBONATE\SODIUM CHLORIDE
     Dosage: 1 DF (BAG), 2X/DAY (MAX.) IN RESERVE
     Route: 048
  10. ORFIRIL [Interacting]
     Active Substance: VALPROATE SODIUM
     Dosage: 750 MG, 2X/DAY
     Dates: start: 201708, end: 20170828
  11. ISONIAZID. [Suspect]
     Active Substance: ISONIAZID
     Indication: ATYPICAL MYCOBACTERIUM TEST POSITIVE
     Dosage: UNK
     Dates: start: 20170729, end: 20170821
  12. MYAMBUTOL [Concomitant]
     Active Substance: ETHAMBUTOL HYDROCHLORIDE
     Indication: MYCOBACTERIUM AVIUM COMPLEX INFECTION
     Dosage: UNK
     Dates: start: 20170821, end: 20170824
  13. DEXAMETHASONE. [Suspect]
     Active Substance: DEXAMETHASONE
     Indication: STEROID THERAPY
     Dosage: 16 MG, 1X/DAY (MORNING)
     Route: 048
     Dates: start: 20170729, end: 20170821
  14. TEMGESIC [Suspect]
     Active Substance: BUPRENORPHINE HYDROCHLORIDE
     Indication: PAIN
     Dosage: 0.2 MG, 3X/DAY + 0.1MG BEFORE THE TOILET
     Route: 060
  15. TEMGESIC [Suspect]
     Active Substance: BUPRENORPHINE HYDROCHLORIDE
     Dosage: 0.1 MG, 3X/D (MAX.) AS NEEDED IF PAIN
     Route: 060
  16. MYAMBUTOL [Concomitant]
     Active Substance: ETHAMBUTOL HYDROCHLORIDE
     Dosage: 600 MG, 1X/24H
     Route: 048
  17. RIFAMPICIN [Interacting]
     Active Substance: RIFAMPIN
     Indication: ATYPICAL MYCOBACTERIUM TEST POSITIVE
     Dosage: UNK
     Route: 048
     Dates: start: 20170729, end: 20170821
  18. HALDOL [Suspect]
     Active Substance: HALOPERIDOL
     Dosage: 1 MG, UNK (TABLET)
     Route: 048
     Dates: start: 20170826, end: 20170826
  19. KIVEXA [Concomitant]
     Active Substance: ABACAVIR SULFATE\LAMIVUDINE
     Dosage: 1 DF, 1X/24H
     Route: 048
     Dates: start: 201708
  20. ISENTRESS [Concomitant]
     Active Substance: RALTEGRAVIR POTASSIUM
     Indication: HIV CARRIER
     Dosage: 400 MG, 1X/12H
     Route: 048
     Dates: start: 201708
  21. WELLVONE [Concomitant]
     Active Substance: ATOVAQUONE
     Indication: ANTIFUNGAL PROPHYLAXIS
     Dosage: 1500 MG, 1X/24H
     Route: 048
     Dates: start: 201707
  22. CLEXANE [Concomitant]
     Active Substance: ENOXAPARIN SODIUM
     Dosage: 20 MG, 1X/DAY, -6H POST OP
     Route: 058
  23. NEXIUM [Concomitant]
     Active Substance: ESOMEPRAZOLE MAGNESIUM
     Dosage: 20 MG, 1X/DAY (MORNING)
     Route: 048
  24. IRFEN [Concomitant]
     Active Substance: IBUPROFEN
     Dosage: 200 MG, 3X/D (MAX.) IN RESERVE
     Route: 048
  25. MYCOBUTIN [Interacting]
     Active Substance: RIFABUTIN
     Indication: MYCOBACTERIUM AVIUM COMPLEX INFECTION
     Dosage: 300 MG (7.538MG/KG), 1X PER 24 HOURS
     Route: 048
     Dates: start: 20170824
  26. MOXIFLOXACIN. [Suspect]
     Active Substance: MOXIFLOXACIN
     Indication: ATYPICAL MYCOBACTERIUM TEST POSITIVE
     Dosage: UNK
     Route: 048
     Dates: start: 20170729, end: 20170821
  27. RIVOTRIL [Interacting]
     Active Substance: CLONAZEPAM
     Dosage: 1 MG, 2X/DAY
     Route: 048

REACTIONS (2)
  - Generalised tonic-clonic seizure [Recovered/Resolved]
  - Drug interaction [Recovered/Resolved]

NARRATIVE: CASE EVENT DATE: 20170826
